FAERS Safety Report 9218775 (Version 1)
Quarter: 2013Q2

REPORT INFORMATION
  Report Type: Spontaneous
  Country: SE (occurrence: SE)
  Receive Date: 20130409
  Receipt Date: 20130409
  Transmission Date: 20140414
  Serious: Yes (Hospitalization)
  Sender: FDA-Public Use
  Company Number: SE-MERCK-1304SWE003521

PATIENT
  Age: 23 Year
  Sex: Female

DRUGS (1)
  1. MIRTAZAPIN [Suspect]
     Dosage: PER ORAL DOSAGE REGIMEN:540 MG1 MG 1,DRUG INFO: INTOXICATION
     Route: 048
     Dates: start: 20121214, end: 20121214

REACTIONS (4)
  - Tachycardia [Unknown]
  - Toxicity to various agents [Unknown]
  - Lethargy [Unknown]
  - Fatigue [Unknown]
